FAERS Safety Report 7425709-7 (Version None)
Quarter: 2011Q2

REPORT INFORMATION
  Report Type: 
  Country: None (occurrence: None)
  Receive Date: 20110420
  Receipt Date: 20110407
  Transmission Date: 20111010
  Serious: Yes (Death, Hospitalization, Other)
  Sender: FDA-Public Use
  Company Number: US-ELI_LILLY_AND_COMPANY-US201104002416

PATIENT
  Sex: Male

DRUGS (2)
  1. ASPIRIN [Concomitant]
  2. FORTEO [Suspect]

REACTIONS (9)
  - CEREBROVASCULAR ACCIDENT [None]
  - MYOCARDIAL INFARCTION [None]
  - DYSARTHRIA [None]
  - FALL [None]
  - DEATH [None]
  - HEART RATE INCREASED [None]
  - ACARODERMATITIS [None]
  - GANGRENE [None]
  - IRRITABILITY [None]
